FAERS Safety Report 15543228 (Version 1)
Quarter: 2018Q4

REPORT INFORMATION
  Report Type: Spontaneous
  Country: US (occurrence: US)
  Receive Date: 20181023
  Receipt Date: 20181023
  Transmission Date: 20190205
  Serious: No
  Sender: FDA-Public Use
  Company Number: US-TEIKOKU PHARMA USA-TPU2018-00621

PATIENT
  Sex: Male
  Weight: 61.29 kg

DRUGS (3)
  1. PURPLE PILL [Concomitant]
     Active Substance: UNSPECIFIED INGREDIENT
     Indication: ULCER
  2. OXYCODONE AND ACETAMINOPHEN [Concomitant]
     Active Substance: ACETAMINOPHEN\OXYCODONE HYDROCHLORIDE
     Indication: BACK PAIN
  3. LIDOCAINE PATCH [Suspect]
     Active Substance: LIDOCAINE
     Indication: BACK PAIN
     Dosage: APPLY THREE ON FOR 12 TAKE OFF FOR 12 HOURS IN A 24 HOUR PERIOD
     Dates: start: 2017, end: 2017

REACTIONS (4)
  - Hypoacusis [Not Recovered/Not Resolved]
  - Nausea [Unknown]
  - Vomiting [Unknown]
  - Disability [Not Recovered/Not Resolved]

NARRATIVE: CASE EVENT DATE: 2017
